FAERS Safety Report 14280012 (Version 1)
Quarter: 2017Q4

REPORT INFORMATION
  Report Type: Spontaneous
  Country: US (occurrence: US)
  Receive Date: 20171212
  Receipt Date: 20171212
  Transmission Date: 20180321
  Serious: Yes (Other)
  Sender: FDA-Public Use
  Company Number: None

PATIENT
  Sex: Female
  Weight: 91.35 kg

DRUGS (15)
  1. DEXTROAMPHET SACCHARAT, AMPHET ASPARTATE, DEXTROAMPHET SULFATE AND AMPHET SULFAT [Suspect]
     Active Substance: AMPHETAMINE ASPARTATE\AMPHETAMINE SULFATE\DEXTROAMPHETAMINE SACCHARATE\DEXTROAMPHETAMINE SULFATE
     Indication: ATTENTION DEFICIT/HYPERACTIVITY DISORDER
     Dosage: ?          QUANTITY:60 TABLET(S);?
     Route: 048
     Dates: start: 20171207, end: 20171212
  2. CLONAZEPAM. [Concomitant]
     Active Substance: CLONAZEPAM
  3. METFORMIN [Concomitant]
     Active Substance: METFORMIN HYDROCHLORIDE
  4. VITAMIN D [Concomitant]
     Active Substance: CHOLECALCIFEROL
  5. SAXCENDA [Concomitant]
  6. TYLENOL [Concomitant]
     Active Substance: ACETAMINOPHEN
  7. SYNTHROID [Concomitant]
     Active Substance: LEVOTHYROXINE SODIUM
  8. ALPRAZOLAM. [Concomitant]
     Active Substance: ALPRAZOLAM
  9. DEXTROAMPHET SACCHARAT, AMPHET ASPARTATE, DEXTROAMPHET SULFATE AND AMPHET SULFAT [Concomitant]
     Active Substance: AMPHETAMINE ASPARTATE\AMPHETAMINE SULFATE\DEXTROAMPHETAMINE SACCHARATE\DEXTROAMPHETAMINE SULFATE
  10. VITAMIN B12 [Concomitant]
     Active Substance: CYANOCOBALAMIN
  11. ESTRADIOL TRANSDERMAL SYSTEM [Concomitant]
     Active Substance: ESTRADIOL
  12. ADDERALL [Concomitant]
     Active Substance: AMPHETAMINE ASPARTATE\AMPHETAMINE SULFATE\DEXTROAMPHETAMINE SACCHARATE\DEXTROAMPHETAMINE SULFATE
  13. TEA [Concomitant]
     Active Substance: TEA LEAF
  14. BABY ASPIRIN [Concomitant]
     Active Substance: ASPIRIN
  15. PROGESTERONE. [Concomitant]
     Active Substance: PROGESTERONE

REACTIONS (10)
  - Tendon disorder [None]
  - Withdrawal syndrome [None]
  - Product substitution issue [None]
  - Nausea [None]
  - Disease recurrence [None]
  - Paraesthesia [None]
  - Somnolence [None]
  - Sensory disturbance [None]
  - Drug ineffective [None]
  - Swelling [None]

NARRATIVE: CASE EVENT DATE: 20171207
